FAERS Safety Report 15095890 (Version 4)
Quarter: 2018Q3

REPORT INFORMATION
  Report Type: Spontaneous
  Country: DE (occurrence: DE)
  Receive Date: 20180702
  Receipt Date: 20180906
  Transmission Date: 20181010
  Serious: Yes (Death, Life-Threatening, Other)
  Sender: FDA-Public Use
  Company Number: PHHY2018DE031576

PATIENT
  Age: 63 Year
  Sex: Male

DRUGS (6)
  1. CAPECITABINE. [Concomitant]
     Active Substance: CAPECITABINE
     Indication: RECTAL ADENOCARCINOMA
     Route: 065
  2. CARBOPLATIN. [Suspect]
     Active Substance: CARBOPLATIN
     Indication: RECTAL ADENOCARCINOMA
     Dosage: (3 CYCLICAL)
     Route: 065
  3. ETOPOSIDE. [Suspect]
     Active Substance: ETOPOSIDE
     Indication: RECTAL ADENOCARCINOMA
     Dosage: 3 CYCLICAL
     Route: 065
  4. ETOPOSIDE. [Suspect]
     Active Substance: ETOPOSIDE
     Indication: MIXED ADENONEUROENDOCRINE CARCINOMA
  5. CARBOPLATIN. [Suspect]
     Active Substance: CARBOPLATIN
     Indication: MIXED ADENONEUROENDOCRINE CARCINOMA
  6. OXALIPLATIN. [Concomitant]
     Active Substance: OXALIPLATIN
     Indication: RECTAL ADENOCARCINOMA
     Dosage: UNK
     Route: 065

REACTIONS (2)
  - Product use in unapproved indication [Unknown]
  - Cerebral haemorrhage [Fatal]
